FAERS Safety Report 8779496 (Version 2)
Quarter: 2012Q4

REPORT INFORMATION
  Report Type: Report from Study
  Country: KR (occurrence: KR)
  Receive Date: 20120912
  Receipt Date: 20120920
  Transmission Date: 20130627
  Serious: Yes (Hospitalization)
  Sender: FDA-Public Use
  Company Number: KR-009507513-1209KOR003781

PATIENT

DRUGS (9)
  1. EMEND [Suspect]
     Indication: ANTIEMETIC SUPPORTIVE CARE
     Dosage: 125 mg, Once
     Route: 048
     Dates: start: 20080307, end: 20080307
  2. EMEND [Suspect]
     Indication: ANTIEMETIC SUPPORTIVE CARE
     Dosage: 80 mg, qd
     Route: 048
     Dates: start: 20080308, end: 20080309
  3. CISPLATIN [Suspect]
     Indication: CHEMOTHERAPY
     Dosage: 72 mg, qd
     Route: 042
     Dates: start: 20080307, end: 20080307
  4. EPIRUBICIN HYDROCHLORIDE [Suspect]
     Indication: CHEMOTHERAPY
     Dosage: 60 mg, qd
     Route: 042
     Dates: start: 20080307, end: 20080307
  5. UFT [Suspect]
     Indication: CHEMOTHERAPY
     Dosage: 2.5 g, tid
     Route: 048
     Dates: start: 20080307
  6. DEXAMETHASONE [Concomitant]
     Indication: PROPHYLAXIS OF NAUSEA AND VOMITING
     Dosage: 12 mg, qd
     Dates: start: 20080307, end: 20080307
  7. ONDANSETRON [Concomitant]
     Indication: PROPHYLAXIS OF NAUSEA AND VOMITING
     Dosage: 24 mg, qd
     Dates: start: 20080307, end: 20080307
  8. DEXAMETHASONE [Concomitant]
     Indication: PROPHYLAXIS OF NAUSEA AND VOMITING
     Dosage: 8 mg, qd
     Dates: start: 20080308, end: 20080309
  9. METOCLOPRAMIDE [Concomitant]
     Indication: PROPHYLAXIS OF NAUSEA AND VOMITING
     Dosage: 15 mg, qd
     Dates: start: 20080308, end: 20080312

REACTIONS (2)
  - Neutropenia [Recovered/Resolved]
  - Dyspepsia [Recovered/Resolved]
